FAERS Safety Report 8916448 (Version 3)
Quarter: 2014Q2

REPORT INFORMATION
  Report Type: Spontaneous
  Country: US (occurrence: US)
  Receive Date: 20121120
  Receipt Date: 20140528
  Transmission Date: 20141212
  Serious: Yes (Hospitalization)
  Sender: FDA-Public Use
  Company Number: US-BAYER-2012-119398

PATIENT
  Age: 31 Year
  Sex: Female
  Weight: 55.78 kg

DRUGS (3)
  1. BEYAZ [Suspect]
     Indication: ACNE
     Dosage: UNK
     Dates: start: 201105, end: 20120404
  2. YAZ [Suspect]
     Indication: ACNE
     Dosage: UNK
     Dates: start: 201105, end: 201204
  3. PERCOCET [Concomitant]

REACTIONS (8)
  - Pulmonary embolism [Recovered/Resolved]
  - Deep vein thrombosis [Recovered/Resolved]
  - Injury [Recovered/Resolved]
  - Pain [Recovered/Resolved]
  - Fear of disease [None]
  - Emotional distress [None]
  - Anhedonia [None]
  - Pain [None]
